FAERS Safety Report 10181611 (Version 1)
Quarter: 2014Q2

REPORT INFORMATION
  Report Type: Spontaneous
  Country: GB (occurrence: GB)
  Receive Date: 20140519
  Receipt Date: 20140519
  Transmission Date: 20141212
  Serious: Yes (Life-Threatening)
  Sender: FDA-Public Use
  Company Number: GB-MYLANLABS-2014S1010403

PATIENT
  Age: 41 Year
  Sex: Female
  Weight: 83 kg

DRUGS (9)
  1. CITALOPRAM HYDROCHLORIDE [Suspect]
     Indication: ANXIETY
     Route: 048
     Dates: start: 20060329, end: 20140108
  2. OMEPRAZOLE [Suspect]
     Indication: GASTROOESOPHAGEAL REFLUX DISEASE
     Route: 048
     Dates: start: 20120320, end: 20140108
  3. CODEINE [Concomitant]
  4. DIAZEPAM [Concomitant]
  5. MORPHINE [Concomitant]
  6. NYTOL /00000402/ [Concomitant]
  7. PARACETAMOL [Concomitant]
  8. PROPRANOLOL HYDROCHLORIDE [Concomitant]
  9. ALCOHOL [Concomitant]

REACTIONS (2)
  - Drug level increased [Unknown]
  - Drug interaction [Unknown]
